FAERS Safety Report 7714619-3 (Version None)
Quarter: 2011Q3

REPORT INFORMATION
  Report Type: 
  Country: None (occurrence: None)
  Receive Date: 20110829
  Receipt Date: 20110823
  Transmission Date: 20111222
  Serious: No
  Sender: FDA-Public Use
  Company Number: US-PFIZER INC-2011196332

PATIENT
  Sex: Female
  Weight: 54 kg

DRUGS (12)
  1. SUTENT [Suspect]
     Dosage: 50 MG, DAILY
     Route: 048
  2. LISINOPRIL [Concomitant]
     Dosage: 5 MG, UNK
  3. SUTENT [Suspect]
     Dosage: 37.5 MG, DAILY
     Route: 048
     Dates: start: 20110718
  4. MAG-OX [Concomitant]
     Dosage: 400 MG, UNK
  5. AMLODIPINE [Concomitant]
     Dosage: 2.5 MG, UNK
  6. SIMVASTATIN [Concomitant]
     Dosage: 10 MG, UNK
  7. METFORMIN [Concomitant]
     Dosage: 500 MG, UNK
  8. VITAMIN B-12 [Concomitant]
     Dosage: 250 MCG
  9. KEPPRA [Concomitant]
     Dosage: 500 MG, UNK
  10. LANTUS [Concomitant]
     Dosage: UNK
  11. FERROUS SULFATE [Concomitant]
     Dosage: 325 MG, UNK
  12. COLACE [Concomitant]
     Dosage: 50 MG, UNK

REACTIONS (4)
  - BLOOD POTASSIUM INCREASED [None]
  - NAUSEA [None]
  - VOMITING [None]
  - DECREASED APPETITE [None]
